FAERS Safety Report 11311444 (Version 2)
Quarter: 2015Q3

REPORT INFORMATION
  Report Type: Spontaneous
  Country: US (occurrence: None)
  Receive Date: 20150723
  Receipt Date: 20150811
  Transmission Date: 20151125
  Serious: Yes (Hospitalization)
  Sender: FDA-Public Use
  Company Number: 2015SMT00182

PATIENT
  Age: 59 Year
  Sex: Male
  Weight: 74.8 kg

DRUGS (4)
  1. ADDITIONAL UNSPECIFED MEDICATIONS (ADDITIONAL UNSPECIFIED MEDICATIONS) [Concomitant]
  2. INSULIN (INSULIN) [Concomitant]
     Active Substance: INSULIN NOS
  3. REGRANEX [Suspect]
     Active Substance: BECAPLERMIN
     Indication: BLISTER INFECTED
     Route: 061
     Dates: start: 20150609, end: 20150623
  4. HIGH BLOOD PRESSURE MEDICATION (UNSPECIFED) (HIGH BLOOD PRESSURE MEDICATION (UNSPECIFIED)) [Concomitant]

REACTIONS (7)
  - Osteomyelitis [None]
  - Cellulitis [None]
  - Infection [None]
  - Diabetic ulcer [None]
  - Anaemia [None]
  - Off label use [None]
  - Localised infection [None]

NARRATIVE: CASE EVENT DATE: 201506
